FAERS Safety Report 12602655 (Version 1)
Quarter: 2016Q3

REPORT INFORMATION
  Report Type: Spontaneous
  Country: CN (occurrence: CN)
  Receive Date: 20160728
  Receipt Date: 20160728
  Transmission Date: 20161109
  Serious: Yes (Hospitalization, Disabling, Other)
  Sender: FDA-Public Use
  Company Number: CN-GLAXOSMITHKLINE-CN2016GSK108067

PATIENT
  Age: 83 Year
  Sex: Female
  Weight: 53 kg

DRUGS (4)
  1. VOLTAREN [Suspect]
     Active Substance: DICLOFENAC SODIUM
     Indication: RHEUMATOID ARTHRITIS
     Dosage: 1 DF, BID
     Route: 048
     Dates: start: 20160101, end: 20160619
  2. CELECOXIB. [Concomitant]
     Active Substance: CELECOXIB
  3. COLCHICINE. [Suspect]
     Active Substance: COLCHICINE
     Indication: GOUT
     Dosage: 1 DF, QD
     Route: 048
     Dates: start: 20160101, end: 20160119
  4. PREDNISONE. [Suspect]
     Active Substance: PREDNISONE
     Indication: RHEUMATOID ARTHRITIS
     Dosage: 10 MG, QD
     Route: 048
     Dates: start: 20160101, end: 20160119

REACTIONS (3)
  - Bone marrow failure [Recovered/Resolved with Sequelae]
  - Hepatic function abnormal [Recovered/Resolved with Sequelae]
  - Renal impairment [Recovered/Resolved with Sequelae]

NARRATIVE: CASE EVENT DATE: 20160119
